FAERS Safety Report 23485450 (Version 2)
Quarter: 2025Q1

REPORT INFORMATION
  Report Type: Spontaneous
  Country: US (occurrence: US)
  Receive Date: 20240206
  Receipt Date: 20250312
  Transmission Date: 20250408
  Serious: No
  Sender: SANOFI AVENTIS
  Company Number: US-SA-SAC20240131000740

PATIENT
  Age: 50 Year
  Sex: Male

DRUGS (1)
  1. DUPIXENT [Suspect]
     Active Substance: DUPILUMAB
     Indication: Dermatitis atopic
     Dosage: 300 MG QOW
     Route: 058

REACTIONS (6)
  - Dyspnoea [Unknown]
  - Cough [Unknown]
  - Dry eye [Unknown]
  - Dermatitis atopic [Unknown]
  - Erythema [Unknown]
  - Pruritus [Unknown]

NARRATIVE: CASE EVENT DATE: 20250101
